FAERS Safety Report 18270679 (Version 3)
Quarter: 2020Q3

REPORT INFORMATION
  Report Type: Spontaneous
  Country: CA (occurrence: CA)
  Receive Date: 20200915
  Receipt Date: 20200922
  Transmission Date: 20201103
  Serious: Yes (Other)
  Sender: FDA-Public Use
  Company Number: CA-PFIZER INC-2015275553

PATIENT
  Age: 66 Year
  Sex: Female

DRUGS (8)
  1. DIOVAN [Suspect]
     Active Substance: VALSARTAN
     Dosage: 160 MG, 1X/DAY
     Route: 065
  2. XELJANZ [Suspect]
     Active Substance: TOFACITINIB CITRATE
     Indication: RHEUMATOID ARTHRITIS
     Dosage: 5 MG, 2X/DAY
     Route: 048
     Dates: start: 20150730, end: 2015
  3. HYDRODIURIL [Suspect]
     Active Substance: HYDROCHLOROTHIAZIDE
     Dosage: 25 MG, 1X/DAY
     Route: 065
  4. TYLENOL ARTHRITIS PAIN [Concomitant]
     Active Substance: ACETAMINOPHEN
     Indication: ARTHRALGIA
     Dosage: AS REQUIRED
  5. FLAGYL [Concomitant]
     Active Substance: METRONIDAZOLE\METRONIDAZOLE HYDROCHLORIDE
     Dosage: 500 MG, 2X/DAY
     Dates: start: 20161013, end: 20161020
  6. DIOVAN [Suspect]
     Active Substance: VALSARTAN
     Dosage: 320 MG, 1X/DAY
     Route: 065
  7. IBUPROFEN. [Concomitant]
     Active Substance: IBUPROFEN
     Dosage: AS REQUIRED
  8. ATENOLOL. [Suspect]
     Active Substance: ATENOLOL
     Dosage: UNK
     Route: 048

REACTIONS (8)
  - Rheumatoid arthritis [Recovered/Resolved]
  - Diverticulitis [Recovered/Resolved]
  - Sensitivity to weather change [Not Recovered/Not Resolved]
  - Abdominal pain [Recovered/Resolved]
  - Mobility decreased [Unknown]
  - Condition aggravated [Recovered/Resolved]
  - Tachycardia [Not Recovered/Not Resolved]
  - Gait disturbance [Unknown]

NARRATIVE: CASE EVENT DATE: 2015
